FAERS Safety Report 9064507 (Version 2)
Quarter: 2013Q2

REPORT INFORMATION
  Report Type: Spontaneous
  Country: CO (occurrence: CO)
  Receive Date: 20130214
  Receipt Date: 20130416
  Transmission Date: 20140414
  Serious: Yes (Other)
  Sender: FDA-Public Use
  Company Number: CO-009507513-1302COL004808

PATIENT
  Age: 35 Year
  Sex: Male

DRUGS (7)
  1. ISENTRESS? 400MG [Suspect]
     Indication: HIV INFECTION
     Dosage: TOTAL DAILY DOSAGE UNKNOWN, BID
     Dates: start: 20111109
  2. ABACAVIR [Concomitant]
  3. LAMIVUDINE [Concomitant]
  4. CIPROFLOXACIN [Concomitant]
     Indication: TUBERCULOSIS
     Dosage: UNK
     Dates: start: 201202, end: 201212
  5. CLARITHROMYCIN [Concomitant]
     Indication: TUBERCULOSIS
     Dosage: UNK
     Dates: start: 201202, end: 201212
  6. ETHAMBUTOL HYDROCHLORIDE [Concomitant]
     Indication: TUBERCULOSIS
     Dosage: UNK
     Dates: start: 201202, end: 201212
  7. SULFAMETHOXAZOLE (+) TRIMETHOPRIM [Concomitant]
     Indication: TUBERCULOSIS
     Dosage: UNK
     Dates: start: 201202, end: 201212

REACTIONS (1)
  - Drug resistance [Not Recovered/Not Resolved]
